FAERS Safety Report 8485102-5 (Version None)
Quarter: 2012Q3

REPORT INFORMATION
  Report Type: 
  Country: None (occurrence: None)
  Receive Date: 20120703
  Receipt Date: 20120625
  Transmission Date: 20120928
  Serious: Yes (Hospitalization)
  Sender: FDA-Public Use
  Company Number: US-BAYER-2012-014324

PATIENT
  Age: 21 Year
  Sex: Female
  Weight: 49.887 kg

DRUGS (8)
  1. YAZ [Suspect]
     Indication: CONTRACEPTION
     Dosage: UNK
     Dates: start: 20061113, end: 20091109
  2. ASPIRIN [Concomitant]
     Indication: PAIN
     Dosage: AS NEEDED
     Route: 048
  3. NEXIUM [Concomitant]
     Indication: GASTROOESOPHAGEAL REFLUX DISEASE
     Dosage: ONE PILL DAILY
     Route: 048
  4. SIMETHICONE [Concomitant]
     Dosage: 80MG TABLETS 2 TABLETS AFTER MEALS
     Route: 048
     Dates: start: 20090402, end: 20100402
  5. DIURETICS [Concomitant]
     Dosage: UNK
     Dates: start: 20080101, end: 20100101
  6. LEXAPRO [Concomitant]
     Indication: ANXIETY
     Dosage: UNK
     Route: 048
     Dates: start: 20090101
  7. LORAZEPAM [Concomitant]
     Indication: ANXIETY
     Dosage: UNK
     Route: 048
     Dates: start: 20090101
  8. VITAMIN TAB [Concomitant]
     Dosage: UNK
     Dates: start: 20090128

REACTIONS (5)
  - ANXIETY [None]
  - INJURY [None]
  - BILIARY DYSKINESIA [None]
  - PAIN [None]
  - DEPRESSION [None]
